FAERS Safety Report 5423446-1 (Version None)
Quarter: 2007Q3

REPORT INFORMATION
  Report Type: 
  Country: None (occurrence: None)
  Receive Date: 20070823
  Receipt Date: 20070816
  Transmission Date: 20080115
  Serious: Yes (Death, Other)
  Sender: FDA-Public Use
  Company Number: HQWYE561811JUN07

PATIENT
  Age: 62 Year
  Sex: Female

DRUGS (4)
  1. CORDARONE [Suspect]
     Indication: ATRIAL FIBRILLATION
     Dosage: 300 MG FOLLOWED BY 900 MG OVER 23 HOURS
     Route: 042
     Dates: start: 20070526, end: 20070531
  2. CLARITHROMYCIN [Concomitant]
     Indication: CARDIAC DISORDER
  3. AMOXICILLIN [Concomitant]
  4. CORDARONE [Suspect]
     Dosage: UNKNOWN
     Route: 048
     Dates: start: 20070526, end: 20070531

REACTIONS (3)
  - COMA [None]
  - HEPATITIS ACUTE [None]
  - MULTI-ORGAN FAILURE [None]
